FAERS Safety Report 15650912 (Version 2)
Quarter: 2018Q4

REPORT INFORMATION
  Report Type: Report from Study
  Country: US (occurrence: US)
  Receive Date: 20181123
  Receipt Date: 20181123
  Transmission Date: 20190205
  Serious: Yes (Hospitalization)
  Sender: FDA-Public Use
  Company Number: US-IPSEN BIOPHARMACEUTICALS, INC.-2018-14609

PATIENT
  Age: 49 Year
  Sex: Female
  Weight: 51.8 kg

DRUGS (1)
  1. DYSPORT [Suspect]
     Active Substance: ABOBOTULINUMTOXINA
     Indication: TORTICOLLIS
     Dosage: 250 UNITS IN LEFT STERNOCLEIDO MASTOID AND 250 UNITS IN RIGHT SPLENIUS CAPITIS AND 500 UNITS (LEFT T
     Route: 030
     Dates: start: 20180814, end: 20180814

REACTIONS (3)
  - Dysphagia [Recovering/Resolving]
  - Dyspnoea [Unknown]
  - Overdose [Unknown]

NARRATIVE: CASE EVENT DATE: 20180822
